FAERS Safety Report 10876218 (Version 1)
Quarter: 2015Q1

REPORT INFORMATION
  Report Type: Spontaneous
  Country: US (occurrence: US)
  Receive Date: 20150227
  Receipt Date: 20150227
  Transmission Date: 20150721
  Serious: No
  Sender: FDA-Public Use
  Company Number: US-AMGEN-USASP2014026386

PATIENT
  Age: 75 Year
  Sex: Female

DRUGS (1)
  1. ENBREL [Suspect]
     Active Substance: ETANERCEPT
     Indication: ANKYLOSING SPONDYLITIS
     Dosage: 50 MG, QWK
     Route: 065
     Dates: start: 20140325

REACTIONS (14)
  - Hypoaesthesia [Unknown]
  - Incision site complication [Unknown]
  - Vomiting [Unknown]
  - Paraesthesia [Unknown]
  - Blood potassium increased [Unknown]
  - Dysstasia [Unknown]
  - Abnormal dreams [Unknown]
  - Headache [Unknown]
  - Injection site mass [Unknown]
  - Hot flush [Unknown]
  - Dizziness [Unknown]
  - Nausea [Unknown]
  - Pain [Unknown]
  - Injection site erythema [Unknown]

NARRATIVE: CASE EVENT DATE: 20140402
